FAERS Safety Report 17262768 (Version 1)
Quarter: 2020Q1

REPORT INFORMATION
  Report Type: Spontaneous
  Country: DE (occurrence: DE)
  Receive Date: 20200113
  Receipt Date: 20200113
  Transmission Date: 20200409
  Serious: Yes (Other)
  Sender: FDA-Public Use
  Company Number: NVSC2019DE000912

PATIENT
  Age: 6 Year
  Sex: Female

DRUGS (5)
  1. TERBINAFINE. [Suspect]
     Active Substance: TERBINAFINE
     Indication: TRICHOPHYTOSIS
  2. CLOTRIMAZOLE. [Concomitant]
     Active Substance: CLOTRIMAZOLE
     Indication: TRICHOPHYTOSIS
  3. TERBINAFINE. [Suspect]
     Active Substance: TERBINAFINE
     Indication: BODY TINEA
     Dosage: 125 MG, QD
     Route: 048
  4. CLOTRIMAZOLE. [Concomitant]
     Active Substance: CLOTRIMAZOLE
     Indication: BODY TINEA
     Dosage: UNK
     Route: 061
  5. CLOTRIMAZOLE. [Concomitant]
     Active Substance: CLOTRIMAZOLE
     Indication: TRICHOPHYTOSIS
     Route: 061

REACTIONS (3)
  - Pyrexia [Unknown]
  - Panic attack [Unknown]
  - Migraine [Unknown]
